FAERS Safety Report 18360441 (Version 1)
Quarter: 2020Q4

REPORT INFORMATION
  Report Type: Spontaneous
  Country: US (occurrence: US)
  Receive Date: 20201007
  Receipt Date: 20201007
  Transmission Date: 20210114
  Serious: Yes (Disabling)
  Sender: FDA-Public Use
  Company Number: None

PATIENT
  Age: 63 Year
  Sex: Female
  Weight: 63.5 kg

DRUGS (4)
  1. AVORSTATIN [Concomitant]
  2. NATURE-THROID [Suspect]
     Active Substance: THYROID, PORCINE
     Indication: THYROID DISORDER
     Dosage: ?          QUANTITY:48.75 MG MILLIGRAM(S);?
     Route: 048
     Dates: start: 20100101, end: 20200915
  3. VITAMIN D3 [Concomitant]
     Active Substance: CHOLECALCIFEROL
  4. CITILAPRAM [Concomitant]

REACTIONS (7)
  - Lethargy [None]
  - Alopecia [None]
  - Skin disorder [None]
  - Dry mouth [None]
  - Onychoclasis [None]
  - Recalled product [None]
  - Product measured potency issue [None]

NARRATIVE: CASE EVENT DATE: 20170403
